FAERS Safety Report 7800914-6 (Version None)
Quarter: 2011Q4

REPORT INFORMATION
  Report Type: 
  Country: None (occurrence: None)
  Receive Date: 20111006
  Receipt Date: 20110926
  Transmission Date: 20120403
  Serious: Yes (Other)
  Sender: FDA-Public Use
  Company Number: US-BAYER-201015291NA

PATIENT
  Age: 31 Year
  Sex: Female
  Weight: 59.8 kg

DRUGS (42)
  1. MAGNEVIST [Suspect]
     Indication: NUCLEAR MAGNETIC RESONANCE IMAGING
  2. OPTIMARK [Suspect]
     Indication: NUCLEAR MAGNETIC RESONANCE IMAGING
  3. DILANTIN [Concomitant]
     Indication: EPILEPSY
  4. METOPROLOL TARTRATE [Concomitant]
  5. AMLODIPINE [Concomitant]
  6. PHENYTOIN [Concomitant]
  7. MORPHINE [Concomitant]
  8. RENAGEL [Concomitant]
  9. MAGNEVIST [Suspect]
     Indication: ANGIOGRAM
     Dosage: UNK
     Dates: start: 20070118, end: 20070118
  10. OPTIMARK [Suspect]
     Indication: ANGIOGRAM
  11. PROHANCE [Suspect]
     Indication: ANGIOGRAM
  12. PROMETHAZINE [Concomitant]
  13. ASPIRIN [Concomitant]
  14. VITAMIN K TAB [Concomitant]
  15. OMNISCAN [Suspect]
     Indication: ANGIOGRAM
     Dosage: UNK
     Dates: start: 20030110, end: 20030110
  16. OMNISCAN [Suspect]
     Indication: NUCLEAR MAGNETIC RESONANCE IMAGING
     Dates: start: 20030922, end: 20030922
  17. DIAZEPAM [Concomitant]
  18. LOVENOX [Concomitant]
  19. LABETALOL HCL [Concomitant]
     Dosage: 400 MG TID
  20. LIDOCAINE [Concomitant]
  21. IBUPROFEN [Concomitant]
  22. PLENDIL [Concomitant]
  23. COUMADIN [Concomitant]
  24. MULTIHANCE [Suspect]
     Indication: ANGIOGRAM
  25. HEPARIN [Concomitant]
  26. OPTIMARK [Suspect]
     Indication: NUCLEAR MAGNETIC RESONANCE IMAGING BRAIN
  27. PROHANCE [Suspect]
     Indication: NUCLEAR MAGNETIC RESONANCE IMAGING
  28. METHADONE HCL [Concomitant]
     Indication: PAIN
  29. NORVASC [Concomitant]
     Dosage: 10 MG BID
     Dates: start: 20031209
  30. ACCUPRIL [Concomitant]
     Dosage: 40 MG BID
     Dates: start: 20031209
  31. VICODIN [Concomitant]
  32. DEPAKOTE [Concomitant]
  33. AMIODARONE HCL [Concomitant]
  34. MULTIHANCE [Suspect]
     Indication: NUCLEAR MAGNETIC RESONANCE IMAGING
  35. PRAVASTATIN [Concomitant]
     Indication: BLOOD PRESSURE INCREASED
  36. ENOXAPARIN [Concomitant]
  37. CARDURA [Concomitant]
  38. CARDIZEM [Concomitant]
  39. LAMICTAL [Concomitant]
  40. CLONIDINE [Concomitant]
  41. PREDNISONE [Concomitant]
  42. ELAVIL [Concomitant]
     Indication: NEURALGIA

REACTIONS (24)
  - NEPHROGENIC SYSTEMIC FIBROSIS [None]
  - JOINT RANGE OF MOTION DECREASED [None]
  - MYALGIA [None]
  - HAND DEFORMITY [None]
  - SKIN HYPERTROPHY [None]
  - ATROPHY [None]
  - SKIN DISCOLOURATION [None]
  - PRURITUS [None]
  - GENERALISED OEDEMA [None]
  - GAIT DISTURBANCE [None]
  - SKIN SWELLING [None]
  - SKIN BURNING SENSATION [None]
  - PAIN [None]
  - ARTHRALGIA [None]
  - JOINT CONTRACTURE [None]
  - PAIN IN EXTREMITY [None]
  - SKIN TIGHTNESS [None]
  - JOINT STIFFNESS [None]
  - STRESS [None]
  - MUSCULOSKELETAL STIFFNESS [None]
  - OEDEMA PERIPHERAL [None]
  - EXFOLIATIVE RASH [None]
  - DRY SKIN [None]
  - ANXIETY [None]
